FAERS Safety Report 4750913-6 (Version None)
Quarter: 2005Q3

REPORT INFORMATION
  Report Type: 
  Country: None (occurrence: None)
  Receive Date: 20050818
  Receipt Date: 20050810
  Transmission Date: 20060218
  Serious: Yes (Other)
  Sender: FDA-Public Use
  Company Number: ZICO001267

PATIENT
  Age: 35 Year
  Sex: Female

DRUGS (1)
  1. PRIALT [Suspect]
     Indication: PAIN
     Dosage: INTRATHECAL
     Route: 037
     Dates: start: 20050401

REACTIONS (1)
  - AMENORRHOEA [None]
